FAERS Safety Report 4553525-2 (Version None)
Quarter: 2004Q4

REPORT INFORMATION
  Report Type: 
  Country: None (occurrence: None)
  Receive Date: 20041227
  Receipt Date: 20041025
  Transmission Date: 20050328
  Serious: No
  Sender: FDA-Public Use
  Company Number: 04P-163-0278426-00

PATIENT
  Age: 58 Year
  Sex: Female
  Weight: 74.8435 kg

DRUGS (4)
  1. HUMIRA [Suspect]
     Indication: RHEUMATOID ARTHRITIS
     Dosage: 40 MG, 1 IN 2 WK, SUBCUTANEOUS
     Route: 058
     Dates: start: 20040801
  2. ISOPHANE INSULIN [Concomitant]
  3. ACETAMINOPHEN [Concomitant]
  4. METHOTREXATE [Concomitant]

REACTIONS (10)
  - BLISTER [None]
  - GINGIVAL SWELLING [None]
  - GINGIVITIS [None]
  - NAUSEA [None]
  - ORAL MUCOSAL BLISTERING [None]
  - SCAB [None]
  - SCAR [None]
  - TOOTH DISORDER [None]
  - UNEVALUABLE EVENT [None]
  - WEIGHT DECREASED [None]
